FAERS Safety Report 22934109 (Version 2)
Quarter: 2023Q4

REPORT INFORMATION
  Report Type: Report from Study
  Country: US (occurrence: US)
  Receive Date: 20230912
  Receipt Date: 20231005
  Transmission Date: 20240110
  Serious: No
  Sender: FDA-Public Use
  Company Number: US-IDORSIA-006900-2023-US

PATIENT
  Sex: Female

DRUGS (2)
  1. QUVIVIQ [Suspect]
     Active Substance: DARIDOREXANT
     Indication: Product used for unknown indication
     Dosage: 50 MG, QD
     Route: 048
     Dates: start: 20230710
  2. MELATONIN [Concomitant]
     Active Substance: MELATONIN
     Dosage: 40 MG, QD
     Route: 048

REACTIONS (2)
  - Dysarthria [Recovered/Resolved]
  - Hangover [Recovered/Resolved]
